FAERS Safety Report 14581746 (Version 2)
Quarter: 2018Q2

REPORT INFORMATION
  Report Type: Spontaneous
  Country: US (occurrence: US)
  Receive Date: 20180228
  Receipt Date: 20180503
  Transmission Date: 20180711
  Serious: No
  Sender: FDA-Public Use
  Company Number: US-BAYER-2018-039558

PATIENT
  Age: 24 Year
  Sex: Female
  Weight: 59.86 kg

DRUGS (2)
  1. SKYLA [Suspect]
     Active Substance: LEVONORGESTREL
     Indication: CONTRACEPTION
     Dosage: 14 MCG/24HR, CONT
     Route: 015
     Dates: start: 20180221, end: 20180221
  2. BETADINE [Concomitant]
     Active Substance: POVIDONE-IODINE
     Indication: INFECTION PROPHYLAXIS
     Dosage: UNK
     Route: 061
     Dates: start: 20180221

REACTIONS (1)
  - Procedural pain [Recovered/Resolved]

NARRATIVE: CASE EVENT DATE: 20180221
